FAERS Safety Report 7298773-6 (Version None)
Quarter: 2011Q1

REPORT INFORMATION
  Report Type: 
  Country: None (occurrence: None)
  Receive Date: 20110209
  Receipt Date: 20110124
  Transmission Date: 20110831
  Serious: Yes (Hospitalization)
  Sender: FDA-Public Use
  Company Number: 2011MA000614

PATIENT
  Age: 49 Year
  Sex: Male

DRUGS (5)
  1. ENTACAPONE [Concomitant]
  2. CARBIDOPA AND LEVODOPA [Suspect]
     Indication: PARKINSON'S DISEASE
     Dosage: PO
     Route: 048
  3. ROPINIROLE [Concomitant]
  4. SELEGILINE [Concomitant]
  5. AMANTADINE HCL [Concomitant]

REACTIONS (10)
  - AKINESIA [None]
  - ON AND OFF PHENOMENON [None]
  - PSYCHOTIC DISORDER [None]
  - SUSPICIOUSNESS [None]
  - DRUG ABUSE [None]
  - AGGRESSION [None]
  - DEPRESSED MOOD [None]
  - ANXIETY [None]
  - PATHOLOGICAL GAMBLING [None]
  - DELUSIONAL DISORDER, UNSPECIFIED TYPE [None]
